FAERS Safety Report 16274051 (Version 1)
Quarter: 2019Q2

REPORT INFORMATION
  Report Type: Spontaneous
  Country: GB (occurrence: GB)
  Receive Date: 20190506
  Receipt Date: 20190506
  Transmission Date: 20190711
  Serious: Yes (Hospitalization, Other)
  Sender: FDA-Public Use
  Company Number: GB-DEXPHARM-20190301

PATIENT
  Age: 91 Year
  Sex: Female

DRUGS (11)
  1. OMEPRAZOLE. [Suspect]
     Active Substance: OMEPRAZOLE
     Route: 048
  2. DIAZEPAM. [Concomitant]
     Active Substance: DIAZEPAM
     Dates: start: 20190320
  3. ACIDEX [Concomitant]
     Active Substance: CALCIUM CARBONATE\SODIUM ALGINATE\SODIUM BICARBONATE
     Dosage: 1 TO 2 UP TO 4 TIMES DAILY
     Dates: start: 20190320
  4. CETRABEN EMOLLIENT CREAM [Concomitant]
     Dates: start: 20190124
  5. AMOXICILLIN. [Concomitant]
     Active Substance: AMOXICILLIN
     Dates: start: 20190225
  6. FLUCLOXACILLIN [Concomitant]
     Active Substance: FLUCLOXACILLIN
     Dates: start: 20190402
  7. SALAMOL [Concomitant]
     Active Substance: ALBUTEROL
     Dosage: 1 TO 2 UP TO 4 TIMES DAILY ; AS NECESSARY
     Dates: start: 20190124
  8. FERROUS FUMARATE [Concomitant]
     Active Substance: FERROUS FUMARATE
     Dosage: 1 TO 2 UP TO 4 TIMES DAILY
     Dates: start: 20190118
  9. FOLIC ACID. [Concomitant]
     Active Substance: FOLIC ACID
     Dosage: 1 TO 2 UP TO 4 TIMES DAILY
     Dates: start: 20190118
  10. PARACETAMOL [Concomitant]
     Active Substance: ACETAMINOPHEN
     Dosage: 1 TO 2 UP TO 4 TIMES DAILY ; AS NECESSARY
     Dates: start: 20190124
  11. DOXYCYCLINE. [Concomitant]
     Active Substance: DOXYCYCLINE
     Dosage: 1 TO 2 UP TO 4 TIMES DAILY
     Dates: start: 20190311

REACTIONS (1)
  - Hyponatraemia [Recovering/Resolving]

NARRATIVE: CASE EVENT DATE: 20190320
